FAERS Safety Report 22534580 (Version 5)
Quarter: 2024Q4

REPORT INFORMATION
  Report Type: Spontaneous
  Country: CA (occurrence: CA)
  Receive Date: 20230608
  Receipt Date: 20241010
  Transmission Date: 20250114
  Serious: Yes (Other)
  Sender: PFIZER
  Company Number: CA-PFIZER INC-202300210383

PATIENT
  Age: 48 Year
  Sex: Female

DRUGS (9)
  1. ABRILADA [Suspect]
     Active Substance: ADALIMUMAB-AFZB
     Indication: Rheumatoid arthritis
     Dosage: 40 MG EVERY 2 WEEK
     Route: 058
  2. ABRILADA [Suspect]
     Active Substance: ADALIMUMAB-AFZB
     Dosage: 40 MG EVERY 2 WEEK (FORMULATION: PREFILLED PEN)
     Route: 058
     Dates: start: 20230301
  3. ABRILADA [Suspect]
     Active Substance: ADALIMUMAB-AFZB
     Dosage: 40 MG EVERY 2 WEEK
     Route: 058
     Dates: start: 2024
  4. GABAPENTIN [Concomitant]
     Active Substance: GABAPENTIN
     Dosage: 300 MG, 3X/DAY
     Dates: start: 2016
  5. HYDROMORPHONE [Concomitant]
     Active Substance: HYDROMORPHONE
     Dosage: 60 MG, 1X/DAY
     Dates: start: 2017
  6. LEFLUNOMIDE [Concomitant]
     Active Substance: LEFLUNOMIDE
     Dosage: 20 MG, 1X/DAY
     Dates: start: 2019
  7. PREDNISONE [Concomitant]
     Active Substance: PREDNISONE
     Dosage: 7 MG, 1X/DAY
     Dates: start: 2016
  8. SULFASALAZINE [Concomitant]
     Active Substance: SULFASALAZINE
     Dosage: 2000 MG, 1X/DAY
     Dates: start: 2020
  9. WARFARIN [Concomitant]
     Active Substance: WARFARIN
     Dosage: 1 DF

REACTIONS (5)
  - Joint injury [Recovering/Resolving]
  - Peripheral swelling [Recovering/Resolving]
  - Bursitis [Unknown]
  - Joint swelling [Unknown]
  - Arthritis infective [Recovering/Resolving]

NARRATIVE: CASE EVENT DATE: 20230101
